FAERS Safety Report 18208221 (Version 2)
Quarter: 2020Q3

REPORT INFORMATION
  Report Type: Spontaneous
  Country: JP (occurrence: JP)
  Receive Date: 20200828
  Receipt Date: 20200909
  Transmission Date: 20201103
  Serious: Yes (Hospitalization)
  Sender: FDA-Public Use
  Company Number: JP-TEVA-2020-JP-1821334

PATIENT
  Age: 73 Year
  Sex: Male

DRUGS (4)
  1. OXALIPLATIN. [Suspect]
     Active Substance: OXALIPLATIN
     Indication: COLON CANCER
     Dosage: SOX REGIMEN
     Route: 065
  2. OTERACIL [Suspect]
     Active Substance: OTERACIL
     Indication: COLON CANCER
     Dosage: SOX REGIMEN
     Route: 065
  3. GIMERACIL [Suspect]
     Active Substance: GIMERACIL
     Indication: COLON CANCER
     Dosage: SOX REGIMEN
     Route: 065
  4. TEGAFUR [Suspect]
     Active Substance: TEGAFUR
     Indication: COLON CANCER
     Dosage: SOX REGIMEN
     Route: 065

REACTIONS (8)
  - Thrombocytopenia [Unknown]
  - Splenomegaly [Unknown]
  - Portal hypertension [Unknown]
  - Varices oesophageal [Recovering/Resolving]
  - Thrombosis [Unknown]
  - Collateral circulation [Unknown]
  - Hepatic function abnormal [Unknown]
  - Venoocclusive liver disease [Unknown]
